FAERS Safety Report 8877110 (Version 1)
Quarter: 2012Q4

REPORT INFORMATION
  Report Type: 
  Country: CA (occurrence: CA)
  Receive Date: 20121030
  Receipt Date: 20121030
  Transmission Date: 20130627
  Serious: Yes (Other)
  Sender: FDA-Public Use
  Company Number: PHHY2008CA01174

PATIENT
  Sex: Female

DRUGS (1)
  1. SANDOSTATIN LAR [Suspect]
     Indication: CARCINOID TUMOUR
     Dosage: 30mg, every 4 week.
     Route: 030
     Dates: start: 20060901

REACTIONS (2)
  - Gallbladder disorder [Not Recovered/Not Resolved]
  - Palpitations [Unknown]
